FAERS Safety Report 18604075 (Version 4)
Quarter: 2021Q1

REPORT INFORMATION
  Report Type: Report from Study
  Country: CA (occurrence: CA)
  Receive Date: 20201211
  Receipt Date: 20210120
  Transmission Date: 20210419
  Serious: Yes (Hospitalization, Other)
  Sender: FDA-Public Use
  Company Number: CA-TAKEDA-2020TUS056790

PATIENT
  Age: 33 Year
  Sex: Male

DRUGS (6)
  1. FLORASTOR [LACTOBACILLUS ACIDOPHILUS] [Concomitant]
     Dosage: UNK UNK, QD
     Route: 048
  2. BENEFIBER FIBER SUPPLEMENT [Concomitant]
     Dosage: UNK UNK, QD
     Route: 048
  3. OMEGA 3?6?9 [BORAGO OFFICINALIS OIL;FISH OIL;LINUM USITATISSIMUM OIL] [Concomitant]
     Dosage: UNK UNK, QD
     Route: 048
  4. VEDOLIZUMAB [Suspect]
     Active Substance: VEDOLIZUMAB
     Indication: COLITIS ULCERATIVE
     Dosage: 300 MILLIGRAM
     Route: 042
     Dates: start: 20160922
  5. ACIDOPHILUS?L [Concomitant]
     Active Substance: LACTOBACILLUS ACIDOPHILUS
     Dosage: UNK UNK, QD
     Route: 048
  6. MEZAVANT [Concomitant]
     Active Substance: MESALAMINE
     Dosage: UNK UNK, QD

REACTIONS (3)
  - Poor venous access [Unknown]
  - Aortic aneurysm [Unknown]
  - Tonsillar haemorrhage [Unknown]
